FAERS Safety Report 15298219 (Version 1)
Quarter: 2018Q3

REPORT INFORMATION
  Report Type: Spontaneous
  Country: US (occurrence: US)
  Receive Date: 20180820
  Receipt Date: 20180820
  Transmission Date: 20181010
  Serious: No
  Sender: FDA-Public Use
  Company Number: US-ALLERGAN-1763997US

PATIENT
  Sex: Male

DRUGS (2)
  1. SAPHRIS [Suspect]
     Active Substance: ASENAPINE MALEATE
     Indication: PRODUCT USED FOR UNKNOWN INDICATION
     Dosage: UNK
     Route: 048
  2. SAPHRIS [Suspect]
     Active Substance: ASENAPINE MALEATE
     Dosage: UNK
     Route: 048

REACTIONS (6)
  - Adverse reaction [Unknown]
  - Suspected counterfeit product [Unknown]
  - Incorrect route of drug administration [Unknown]
  - Feeling abnormal [Unknown]
  - Disturbance in attention [Unknown]
  - Anxiety [Unknown]
